FAERS Safety Report 25137276 (Version 1)
Quarter: 2025Q1

REPORT INFORMATION
  Report Type: Report from Study
  Country: US (occurrence: US)
  Receive Date: 20250329
  Receipt Date: 20250329
  Transmission Date: 20250409
  Serious: Yes (Other)
  Sender: ABBVIE
  Company Number: US-ABBVIE-6197551

PATIENT
  Sex: Male
  Weight: 86.182 kg

DRUGS (1)
  1. LUPRON [Suspect]
     Active Substance: LEUPROLIDE ACETATE
     Indication: Prostate cancer
     Dosage: FORM STRENGTH: 3.75 MILLIGRAM
     Route: 030
     Dates: start: 2009

REACTIONS (5)
  - Hepatic cirrhosis [Unknown]
  - Blood iron decreased [Not Recovered/Not Resolved]
  - Thrombosis [Not Recovered/Not Resolved]
  - Full blood count decreased [Not Recovered/Not Resolved]
  - Arthritis [Not Recovered/Not Resolved]
